FAERS Safety Report 21224317 (Version 3)
Quarter: 2022Q3

REPORT INFORMATION
  Report Type: Report from Study
  Country: CA (occurrence: None)
  Receive Date: 20220817
  Receipt Date: 20220915
  Transmission Date: 20221026
  Serious: Yes (Hospitalization)
  Sender: FDA-Public Use
  Company Number: CA-ROCHE-3109971

PATIENT
  Age: 38 Year
  Sex: Male

DRUGS (10)
  1. OCRELIZUMAB [Suspect]
     Active Substance: OCRELIZUMAB
     Indication: Relapsing-remitting multiple sclerosis
     Dosage: ON 31/JAN/2022 AT 09: 45, RECEIVED MOST RECENT DOSE (600 MG) OF OCRELIZUMAB PRIOR EVENT ONSET.
     Route: 042
     Dates: start: 20210803
  2. OCRELIZUMAB [Suspect]
     Active Substance: OCRELIZUMAB
     Indication: Primary progressive multiple sclerosis
  3. DOXYCYCLINE [Concomitant]
     Active Substance: DOXYCYCLINE
     Indication: Upper respiratory tract infection
     Route: 048
     Dates: start: 20220311, end: 20220318
  4. METHYLPREDNISOLONE [Concomitant]
     Active Substance: METHYLPREDNISOLONE
     Dosage: (START TIME 9.45; STOP TIME 10.00)
     Route: 042
     Dates: start: 20210803, end: 20210803
  5. METHYLPREDNISOLONE [Concomitant]
     Active Substance: METHYLPREDNISOLONE
     Dosage: START TIME 9.00; STOP TIME 9.15
     Route: 042
     Dates: start: 20220131, end: 20220131
  6. METHYLPREDNISOLONE [Concomitant]
     Active Substance: METHYLPREDNISOLONE
     Dosage: (START TIME 9.10; STOP TIME 9.30)
     Route: 042
     Dates: start: 20220801, end: 20220801
  7. ACETAMINOPHEN [Concomitant]
     Active Substance: ACETAMINOPHEN
     Dosage: ONCE BEFORE INFUSION, 31/JAN/2022
     Route: 048
     Dates: start: 20210803, end: 20210803
  8. COVID-19 VACCINE [Concomitant]
     Route: 030
     Dates: start: 20211202, end: 20211202
  9. COVID-19 VACCINE [Concomitant]
     Route: 030
     Dates: start: 20220616, end: 20220616
  10. DIPHENHYDRAMINE [Concomitant]
     Active Substance: DIPHENHYDRAMINE
     Dosage: 31/AUG/2022, 01/AUG/2022, ONCE?BEFORE?INFUSION
     Route: 048
     Dates: start: 20210803, end: 20210803

REACTIONS (1)
  - COVID-19 [Recovered/Resolved with Sequelae]

NARRATIVE: CASE EVENT DATE: 20220220
